FAERS Safety Report 7774579 (Version 6)
Quarter: 2013Q3

REPORT INFORMATION
  Report Type: Spontaneous
  Country: US (occurrence: US)
  Receive Date: 20110126
  Receipt Date: 20130828
  Transmission Date: 20140515
  Serious: Yes (Hospitalization, Other)
  Sender: FDA-Public Use
  Company Number: US-ROCHE-755116

PATIENT
  Age: 30 Year
  Sex: Male

DRUGS (1)
  1. ACCUTANE [Suspect]
     Indication: PRODUCT USED FOR UNKNOWN INDICATION
     Route: 048
     Dates: start: 199901, end: 200101

REACTIONS (15)
  - Crohn^s disease [Unknown]
  - Pain [Unknown]
  - Emotional distress [Unknown]
  - Proctitis ulcerative [Unknown]
  - Anal abscess [Unknown]
  - Fistula [Unknown]
  - Depression [Unknown]
  - Oral infection [Unknown]
  - Aphthous stomatitis [Unknown]
  - Bacterial infection [Unknown]
  - Arthralgia [Unknown]
  - Oedema [Unknown]
  - Tenderness [Unknown]
  - Pyrexia [Unknown]
  - Chills [Unknown]
